FAERS Safety Report 5552678-7 (Version None)
Quarter: 2007Q4

REPORT INFORMATION
  Report Type: 
  Country: None (occurrence: None)
  Receive Date: 20071212
  Receipt Date: 20070625
  Transmission Date: 20080405
  Serious: No
  Sender: FDA-Public Use
  Company Number: US-AMGEN-KDL226519

PATIENT
  Sex: Male

DRUGS (2)
  1. ENBREL [Suspect]
     Indication: SARCOIDOSIS
     Route: 058
     Dates: start: 20070420
  2. METHOTREXATE [Concomitant]
     Dates: start: 20060101

REACTIONS (5)
  - BLISTER [None]
  - BODY TEMPERATURE DECREASED [None]
  - INJECTION SITE PAIN [None]
  - PAIN [None]
  - PYREXIA [None]
